FAERS Safety Report 13771963 (Version 1)
Quarter: 2017Q3

REPORT INFORMATION
  Report Type: Spontaneous
  Country: US (occurrence: US)
  Receive Date: 20170720
  Receipt Date: 20170720
  Transmission Date: 20171127
  Serious: Yes (Other)
  Sender: FDA-Public Use
  Company Number: US-SA-2017SA127201

PATIENT
  Age: 74 Year
  Sex: Male

DRUGS (1)
  1. BCG FOR IMMUNOTHERAPY [Suspect]
     Active Substance: BACILLUS CALMETTE-GUERIN ANTIGEN, UNSPECIFIED SUBSTRAIN
     Indication: BLADDER CANCER
     Route: 043
     Dates: start: 2003, end: 2003

REACTIONS (2)
  - Disseminated Bacillus Calmette-Guerin infection [Unknown]
  - Prostatitis [Unknown]

NARRATIVE: CASE EVENT DATE: 2013
